FAERS Safety Report 4494179-3 (Version None)
Quarter: 2004Q4

REPORT INFORMATION
  Report Type: 
  Country: None (occurrence: None)
  Receive Date: 20041102
  Receipt Date: 20041020
  Transmission Date: 20050328
  Serious: Yes (Hospitalization, Other)
  Sender: FDA-Public Use
  Company Number: 2004022882

PATIENT
  Age: 23 Year
  Sex: Female
  Weight: 72 kg

DRUGS (12)
  1. FLUCONAZOLE [Suspect]
     Indication: INFECTION
     Dosage: 400 MG (1 IN 1 D), INTRAVENOUS
     Route: 042
     Dates: start: 20031124, end: 20031206
  2. PANTOPRAZOLE (PANTOPRAZOLE) [Suspect]
     Indication: INFECTION
     Dosage: 40 MG DAILY INTRAVENOUS
     Route: 042
     Dates: start: 20031124, end: 20031204
  3. LEVOFLOXACIN [Suspect]
     Indication: INFECTION
     Dosage: 125 MG DAILY INTRAVENOUS
     Route: 042
     Dates: start: 20031124, end: 20031206
  4. HEPARIN CALCIUM [Suspect]
     Indication: ILL-DEFINED DISORDER
     Dosage: SUBCUTANEOUS
     Route: 058
     Dates: start: 20031205, end: 20031215
  5. VANCOMYCIN [Suspect]
     Indication: ILL-DEFINED DISORDER
     Dosage: 1 GRAM DAILY INTRAVENOUS
     Route: 042
     Dates: start: 20031124, end: 20031206
  6. MEROPENEM (MEROPENEM) [Suspect]
     Indication: ILL-DEFINED DISORDER
     Dosage: 2.45 GRAM DAILY INTRAVENOUS
     Route: 042
     Dates: start: 20031124, end: 20031206
  7. CEFTRIAXONE SODIUM [Concomitant]
  8. ACYCLOVIR [Concomitant]
  9. . [Concomitant]
  10. . [Concomitant]
  11. . [Concomitant]
  12. . [Concomitant]

REACTIONS (14)
  - AGRANULOCYTOSIS [None]
  - AORTIC VALVE INCOMPETENCE [None]
  - CONDITION AGGRAVATED [None]
  - DRUG INEFFECTIVE [None]
  - HISTIOCYTOSIS HAEMATOPHAGIC [None]
  - HYPERSENSITIVITY [None]
  - IMMUNE SYSTEM DISORDER [None]
  - LEUKOPENIA [None]
  - MENINGITIS [None]
  - MULTI-ORGAN FAILURE [None]
  - NEUROLOGICAL SYMPTOM [None]
  - NUCLEAR MAGNETIC RESONANCE IMAGING BRAIN ABNORMAL [None]
  - SYSTEMIC LUPUS ERYTHEMATOSUS [None]
  - THROMBOCYTOPENIA [None]
